FAERS Safety Report 5609507-2 (Version None)
Quarter: 2008Q1

REPORT INFORMATION
  Report Type: 
  Country: None (occurrence: None)
  Receive Date: 20080131
  Receipt Date: 20080123
  Transmission Date: 20080703
  Serious: Yes (Other)
  Sender: FDA-Public Use
  Company Number: US-GILEAD-2008-0015081

PATIENT
  Sex: Female

DRUGS (18)
  1. LETAIRIS [Suspect]
     Indication: PULMONARY HYPERTENSION
     Route: 048
     Dates: start: 20071001, end: 20071101
  2. OXYGEN [Concomitant]
     Indication: PULMONARY FIBROSIS
     Dosage: 2 LPM WITH EXERTION
     Route: 055
  3. OXYGEN [Concomitant]
     Indication: INTERSTITIAL LUNG DISEASE
  4. ESOMEPRAZOLE [Concomitant]
     Indication: PULMONARY FIBROSIS
     Route: 048
  5. ESOMEPRAZOLE [Concomitant]
     Indication: SYSTEMIC SCLEROSIS
  6. LOPERAMIDE HCL [Concomitant]
     Indication: SYSTEMIC SCLEROSIS
     Route: 048
  7. LEVOFLOXACIN [Concomitant]
     Indication: INTERSTITIAL LUNG DISEASE
     Route: 048
  8. ATENOLOL [Concomitant]
     Route: 048
  9. ATORVASTATIN [Concomitant]
     Indication: HYPERLIPIDAEMIA
     Route: 048
  10. LEVOTHYROXINE SODIUM [Concomitant]
     Indication: HYPOTHYROIDISM
     Route: 048
  11. MYCOPHENOLATE MOFETIL [Concomitant]
     Indication: LUNG DISORDER
     Route: 048
  12. PREDNISONE TAB [Concomitant]
     Route: 048
  13. QUETIAPINE FUMARATE [Concomitant]
     Route: 048
  14. HYCODAN [Concomitant]
     Dosage: 5 MG-1.5 MG/5 ML
     Route: 048
  15. IMMUNE GLOBULIN INTRAVENOUS (HUMAN) [Concomitant]
     Route: 042
  16. AMBIEN [Concomitant]
     Route: 048
  17. MULTI-VITAMIN [Concomitant]
     Route: 048
  18. VICODIN [Concomitant]
     Dosage: 5 MG-500 MG
     Route: 048

REACTIONS (4)
  - LYMPHADENOPATHY [None]
  - MIDDLE EAR EFFUSION [None]
  - PHARYNGOLARYNGEAL PAIN [None]
  - SINUSITIS [None]
